FAERS Safety Report 18054142 (Version 2)
Quarter: 2020Q4

REPORT INFORMATION
  Report Type: Report from Study
  Country: US (occurrence: US)
  Receive Date: 20200722
  Receipt Date: 20201109
  Transmission Date: 20210113
  Serious: No
  Sender: FDA-Public Use
  Company Number: US-AMGEN-USASP2020093233

PATIENT
  Age: 71 Year
  Sex: Male

DRUGS (1)
  1. OTEZLA [Suspect]
     Active Substance: APREMILAST
     Indication: PSORIASIS
     Dosage: 30 MILLIGRAM, BID
     Route: 048
     Dates: start: 2020

REACTIONS (6)
  - Weight decreased [Unknown]
  - Psoriasis [Not Recovered/Not Resolved]
  - Blood oestrogen increased [Unknown]
  - Breast mass [Unknown]
  - Decreased appetite [Unknown]
  - Blood pressure decreased [Unknown]

NARRATIVE: CASE EVENT DATE: 2020
